FAERS Safety Report 23467298 (Version 3)
Quarter: 2024Q1

REPORT INFORMATION
  Report Type: Spontaneous
  Country: US (occurrence: US)
  Receive Date: 20240201
  Receipt Date: 20240227
  Transmission Date: 20240410
  Serious: No
  Sender: FDA-Public Use
  Company Number: US-PFIZER INC-PV202400006939

PATIENT
  Age: 76 Year
  Sex: Male

DRUGS (2)
  1. INLYTA [Suspect]
     Active Substance: AXITINIB
     Dosage: TAKE ONE TABLET BY MOUTH TWICE DAILY
     Route: 048
  2. INLYTA [Suspect]
     Active Substance: AXITINIB
     Dosage: (1 MG TABLET) 3 TABLET ORAL 3 TABLETS TWICE A DAY
     Route: 048
     Dates: start: 20230501

REACTIONS (2)
  - Aphonia [Unknown]
  - Product prescribing error [Not Recovered/Not Resolved]
